FAERS Safety Report 22374598 (Version 1)
Quarter: 2023Q2

REPORT INFORMATION
  Report Type: Spontaneous
  Country: CA (occurrence: CA)
  Receive Date: 20230526
  Receipt Date: 20230526
  Transmission Date: 20230722
  Serious: Yes (Hospitalization)
  Sender: FDA-Public Use
  Company Number: CA-HLS-202301108

PATIENT
  Sex: Male

DRUGS (11)
  1. BENZTROPINE [Suspect]
     Active Substance: BENZTROPINE
     Indication: Behaviour disorder
     Route: 065
  2. CITALOPRAM HYDROBROMIDE [Suspect]
     Active Substance: CITALOPRAM HYDROBROMIDE
     Indication: Behaviour disorder
     Dosage: 1 EVERY 1 DAYS?AMOUNT: 40 MILLIGRAM
     Route: 065
  3. CLOBAZAM [Suspect]
     Active Substance: CLOBAZAM
     Indication: Behaviour disorder
     Dosage: 1 EVERY 8 HOURS?AMOUNT: 10 MILLIGRAM?TABLETS DOSAGE FORM
     Route: 065
  4. CLOZAPINE [Suspect]
     Active Substance: CLOZAPINE
     Indication: Behaviour disorder
     Dosage: 1 EVERY 1 DAYS?AMOUNT: 300 MILLIGRAM?TABLETS DOSAGE FORM
     Route: 065
  5. LAMOTRIGINE [Suspect]
     Active Substance: LAMOTRIGINE
     Indication: Behaviour disorder
     Dosage: 1 EVERY 1 DAYS?AMOUNT: 25 MILLIGRAM?TABLETS DOSAGE FORM
     Route: 065
  6. DIVALPROEX SODIUM [Suspect]
     Active Substance: DIVALPROEX SODIUM
     Indication: Behaviour disorder
     Dosage: 1 EVERY 12 HOURS?AMOUNT: 750 MILLIGRAM
     Route: 065
  7. DIVALPROEX SODIUM [Suspect]
     Active Substance: DIVALPROEX SODIUM
     Indication: Behaviour disorder
     Dosage: 1 EVERY 12 HOURS?AMOUNT: 750 MILLIGRAM?NOT SPECIFIED DOSAGE FORM?THERAPY DURATION: 206 DAYS
     Route: 065
  8. ZOPICLONE [Suspect]
     Active Substance: ZOPICLONE
     Indication: Aggression
     Dosage: 1 EVERY 8 HOURS?AMOUNT: 7.5 MILLIGRAM?TABLETS DOSAGE FORM?THERAPY DURATION: 206 DAYS
     Route: 065
  9. ZUCLOPENTHIXOL [Suspect]
     Active Substance: ZUCLOPENTHIXOL
     Indication: Behaviour disorder
     Dosage: 1 EVERY 1 WEEKS?AMOUNT: 150 MILLIGRAM
     Route: 065
  10. ZUCLOPENTHIXOL ACETATE [Suspect]
     Active Substance: ZUCLOPENTHIXOL ACETATE
     Indication: Behaviour disorder
     Dosage: 1 EVERY 1 WEEKS?AMOUNT: 150 MILLIGRAM
     Route: 065
  11. ZUCLOPENTHIXOL HYDROCHLORIDE [Suspect]
     Active Substance: ZUCLOPENTHIXOL HYDROCHLORIDE
     Indication: Behaviour disorder
     Dosage: 1 EVERY 1 WEEKS?AMOUNT: 150 MILLIGRAM
     Route: 065

REACTIONS (2)
  - Drug ineffective [Unknown]
  - Off label use [Unknown]
